FAERS Safety Report 9262903 (Version 1)
Quarter: 2013Q2

REPORT INFORMATION
  Report Type: Spontaneous
  Country: US (occurrence: US)
  Receive Date: 20130430
  Receipt Date: 20130430
  Transmission Date: 20140414
  Serious: Yes (Other)
  Sender: FDA-Public Use
  Company Number: US-BAYER-2013-052837

PATIENT
  Age: 70 Year
  Sex: Female

DRUGS (7)
  1. CIPRO [Suspect]
     Indication: BLOOD URINE PRESENT
     Dosage: 250 MG, UNK
     Dates: start: 20130305
  2. CIPRO [Suspect]
     Indication: BLOOD URINE PRESENT
     Dosage: 750 MG, UNK
  3. METOPROLOL [Concomitant]
     Dosage: 50 MG, UNK
  4. METOPROLOL [Concomitant]
     Dosage: 100 MG, UNK
  5. LISINOPRIL [Concomitant]
     Dosage: 10 MG, UNK
  6. LISINOPRIL [Concomitant]
     Dosage: 40 MG, UNK
  7. METRONIDAZOLE [Concomitant]
     Indication: DIVERTICULITIS
     Dosage: 500 MG, QID

REACTIONS (2)
  - Hypertension [None]
  - Off label use [None]
